FAERS Safety Report 18005620 (Version 8)
Quarter: 2021Q2

REPORT INFORMATION
  Report Type: Report from Study
  Country: US (occurrence: US)
  Receive Date: 20200709
  Receipt Date: 20210413
  Transmission Date: 20210717
  Serious: Yes (Hospitalization, Other)
  Sender: FDA-Public Use
  Company Number: NVSC2020US194241

PATIENT
  Age: 78 Year
  Sex: Female

DRUGS (1)
  1. ENTRESTO [Suspect]
     Active Substance: SACUBITRIL\VALSARTAN
     Indication: CARDIAC FAILURE
     Dosage: 200 MG, BID
     Route: 048
     Dates: start: 20191203

REACTIONS (9)
  - Cough [Recovering/Resolving]
  - Hip fracture [Unknown]
  - Eye swelling [Unknown]
  - Rhinorrhoea [Unknown]
  - Incorrect dose administered [Unknown]
  - Fall [Unknown]
  - Product dose omission issue [Unknown]
  - Heart rate decreased [Not Recovered/Not Resolved]
  - Joint swelling [Recovered/Resolved]

NARRATIVE: CASE EVENT DATE: 202102
